FAERS Safety Report 19836318 (Version 1)
Quarter: 2021Q3

REPORT INFORMATION
  Report Type: Spontaneous
  Country: US (occurrence: US)
  Receive Date: 20210915
  Receipt Date: 20210915
  Transmission Date: 20211014
  Serious: No
  Sender: FDA-Public Use
  Company Number: US-BIOHAVEN PHARMACEUTICALS-2021BHV01086

PATIENT
  Age: 66 Year
  Sex: Female
  Weight: 56.69 kg

DRUGS (5)
  1. AJOVY [Concomitant]
     Active Substance: FREMANEZUMAB-VFRM
  2. NURTEC ODT [Suspect]
     Active Substance: RIMEGEPANT SULFATE
     Indication: MIGRAINE
     Dosage: 75 MG, ONCE
     Route: 048
     Dates: start: 20210821
  3. KLONOPIN [Concomitant]
     Active Substance: CLONAZEPAM
  4. VYEPTI [Concomitant]
     Active Substance: EPTINEZUMAB-JJMR
  5. LAMICTAL [Concomitant]
     Active Substance: LAMOTRIGINE

REACTIONS (1)
  - Hypoaesthesia oral [Not Recovered/Not Resolved]

NARRATIVE: CASE EVENT DATE: 20210821
